FAERS Safety Report 8840422 (Version 2)
Quarter: 2012Q4

REPORT INFORMATION
  Report Type: 
  Country: US (occurrence: US)
  Receive Date: 20121015
  Receipt Date: 20121105
  Transmission Date: 20130627
  Serious: Yes (Other)
  Sender: FDA-Public Use
  Company Number: US-ROCHE-1139026

PATIENT
  Sex: Male

DRUGS (2)
  1. PROTROPIN [Suspect]
     Indication: FAILURE TO THRIVE
     Route: 058
     Dates: start: 20000302
  2. PROTROPIN [Suspect]
     Indication: BODY HEIGHT BELOW NORMAL
     Route: 058
     Dates: start: 20000327, end: 20020123

REACTIONS (2)
  - Corneal abrasion [Unknown]
  - Growth retardation [Unknown]
